FAERS Safety Report 20098928 (Version 1)
Quarter: 2021Q4

REPORT INFORMATION
  Report Type: Spontaneous
  Country: NL (occurrence: NL)
  Receive Date: 20211122
  Receipt Date: 20211122
  Transmission Date: 20220303
  Serious: Yes (Other)
  Sender: FDA-Public Use
  Company Number: None

PATIENT
  Age: 63 Year
  Sex: Male
  Weight: 105 kg

DRUGS (10)
  1. CITALOPRAM [Suspect]
     Active Substance: CITALOPRAM HYDROBROMIDE
     Indication: Depression
     Dosage: 40 MILLIGRAM OMHULDE TABLET, 40 MG (MILLIGRAM)
     Dates: start: 2012, end: 20211014
  2. SIMVASTATIN [Concomitant]
     Active Substance: SIMVASTATIN
     Dosage: UNK, FILMOMHULDE TABLET, 40 MG (MILLIGRAM)
  3. PERINDOPRIL [Concomitant]
     Active Substance: PERINDOPRIL
     Dosage: UNK, (OMHULDE TABLET, 40 MG (MILLIGRAM)
  4. METOPROLOL [Concomitant]
     Active Substance: METOPROLOL
     Dosage: UNK, (TABLET MET GEREGULEERDE AFGIFTE, 100 MG (MILLIGRAM)
  5. ESOMEPRAZOL                        /01479301/ [Concomitant]
     Dosage: UNK, (MAAGSAPRESISTENTE CAPSULE, 40 MG (MILLIGRAM)
  6. GLICLAZIDE [Concomitant]
     Active Substance: GLICLAZIDE
     Dosage: UNK, (TABLET MET GEREGULEERDE AFGIFTE, 80 MG (MILLIGRAM)
  7. AMLODIPINE [Concomitant]
     Active Substance: AMLODIPINE BESYLATE
     Dosage: UNK, (TABLET, 10 MG (MILLIGRAM)
  8. FUROSEMIDE [Concomitant]
     Active Substance: FUROSEMIDE
     Dosage: UNK, (TABLET, 40 MG (MILLIGRAM)
  9. CARBASPIRIN CALCIUM [Concomitant]
     Active Substance: CARBASPIRIN CALCIUM
     Dosage: UNK, (POEDER 100MG)
  10. METFORMINE                         /00082701/ [Concomitant]
     Dosage: UNK, (TABLET, 850 MG (MILLIGRAM)

REACTIONS (5)
  - Narcolepsy [Recovering/Resolving]
  - Withdrawal syndrome [Recovering/Resolving]
  - Hunger [Recovering/Resolving]
  - Eye inflammation [Not Recovered/Not Resolved]
  - Sleep disorder [Recovering/Resolving]

NARRATIVE: CASE EVENT DATE: 20210529
